FAERS Safety Report 4950832-6 (Version None)
Quarter: 2006Q1

REPORT INFORMATION
  Report Type: 
  Country: None (occurrence: None)
  Receive Date: 20060322
  Receipt Date: 20050610
  Transmission Date: 20060701
  Serious: Yes (Hospitalization, Other)
  Sender: FDA-Public Use
  Company Number: US-BRISTOL-MYERS SQUIBB COMPANY-13000047

PATIENT
  Age: 72 Year
  Sex: Female

DRUGS (6)
  1. CETUXIMAB [Suspect]
     Indication: NON-SMALL CELL LUNG CANCER
     Dosage: INITIATED 14-APR-2005.
     Route: 042
     Dates: start: 20050525, end: 20050525
  2. CARBOPLATIN [Suspect]
     Indication: NON-SMALL CELL LUNG CANCER
     Dosage: INITIATED 14-APR-2005.
     Route: 042
     Dates: start: 20050525, end: 20050525
  3. GEMZAR [Suspect]
     Indication: NON-SMALL CELL LUNG CANCER
     Dosage: INITIATED 14-APR-2005.
     Route: 042
     Dates: start: 20050525, end: 20050525
  4. GLYBURIDE [Concomitant]
     Dates: start: 20050408
  5. LISINOPRIL [Concomitant]
     Dates: start: 20050408
  6. TEMAZEPAM [Concomitant]
     Dates: start: 20050412

REACTIONS (12)
  - BACTERAEMIA [None]
  - BLOOD CALCIUM DECREASED [None]
  - BLOOD MAGNESIUM DECREASED [None]
  - DEPRESSION [None]
  - DIABETES MELLITUS [None]
  - FEBRILE NEUTROPENIA [None]
  - HYPOKALAEMIA [None]
  - HYPONATRAEMIA [None]
  - HYPOVOLAEMIA [None]
  - MALNUTRITION [None]
  - PANCYTOPENIA [None]
  - SYNCOPE [None]
